FAERS Safety Report 19857204 (Version 1)
Quarter: 2021Q3

REPORT INFORMATION
  Report Type: Spontaneous
  Country: CA (occurrence: CA)
  Receive Date: 20210920
  Receipt Date: 20210920
  Transmission Date: 20211014
  Serious: Yes (Other)
  Sender: FDA-Public Use
  Company Number: CA-TEVA-2021-CA-1954957

PATIENT
  Age: 20 Year
  Sex: Female

DRUGS (2)
  1. AZATHIOPRINE. [Suspect]
     Active Substance: AZATHIOPRINE
     Indication: HYPOPHYSITIS
     Route: 065
  2. MYCOPHENOLATE MOFETIL. [Suspect]
     Active Substance: MYCOPHENOLATE MOFETIL
     Indication: HYPOPHYSITIS
     Route: 065

REACTIONS (6)
  - Hypopituitarism [Unknown]
  - Diabetes insipidus [Unknown]
  - Hepatitis [Unknown]
  - Product use in unapproved indication [Unknown]
  - Hyperglycaemia [Unknown]
  - Pituitary-dependent Cushing^s syndrome [Unknown]
